FAERS Safety Report 16822158 (Version 3)
Quarter: 2020Q1

REPORT INFORMATION
  Report Type: Spontaneous
  Country: US (occurrence: US)
  Receive Date: 20190918
  Receipt Date: 20200318
  Transmission Date: 20200409
  Serious: No
  Sender: FDA-Public Use
  Company Number: US-PFIZER INC-2019386895

PATIENT
  Age: 69 Year
  Sex: Male
  Weight: 100 kg

DRUGS (1)
  1. LYRICA [Suspect]
     Active Substance: PREGABALIN
     Indication: LIMB DISCOMFORT
     Dosage: 1 DF, 3X/DAY
     Route: 048

REACTIONS (4)
  - Pain [Unknown]
  - Off label use [Unknown]
  - Gait disturbance [Unknown]
  - Product use in unapproved indication [Unknown]
